FAERS Safety Report 9771119 (Version 2)
Quarter: 2014Q3

REPORT INFORMATION
  Report Type: Spontaneous
  Country: US (occurrence: US)
  Receive Date: 20131218
  Receipt Date: 20140903
  Transmission Date: 20150326
  Serious: Yes (Other)
  Sender: FDA-Public Use
  Company Number: US-TEVA-451821USA

PATIENT
  Sex: Female
  Weight: 65.83 kg

DRUGS (1)
  1. PLAN B ONE-STEP [Suspect]
     Active Substance: LEVONORGESTREL
     Indication: POST COITAL CONTRACEPTION
     Dosage: 1.5 MILLIGRAM DAILY;
     Route: 048
     Dates: start: 201311, end: 201311

REACTIONS (2)
  - Abortion spontaneous [Recovered/Resolved]
  - Human chorionic gonadotropin decreased [Recovered/Resolved]
